FAERS Safety Report 6424705-6 (Version None)
Quarter: 2009Q4

REPORT INFORMATION
  Report Type: 
  Country: None (occurrence: None)
  Receive Date: 20091102
  Receipt Date: 20091102
  Transmission Date: 20100525
  Serious: No
  Sender: FDA-Public Use
  Company Number: None

PATIENT

DRUGS (1)
  1. VARENICLINE [Suspect]
     Indication: SMOKING CESSATION THERAPY
     Dosage: 1 MG EVERYDAY PO
     Route: 048
     Dates: start: 20080924, end: 20081001

REACTIONS (4)
  - NAUSEA [None]
  - NIGHTMARE [None]
  - SLEEP DISORDER [None]
  - VOMITING [None]
